FAERS Safety Report 5130612-1 (Version None)
Quarter: 2006Q3

REPORT INFORMATION
  Report Type: 
  Country: None (occurrence: None)
  Receive Date: 20060829
  Receipt Date: 20060601
  Transmission Date: 20061208
  Serious: No
  Sender: FDA-Public Use
  Company Number: PHEH2006US05971

PATIENT
  Age: 18 Year
  Sex: Female
  Weight: 49.4 kg

DRUGS (3)
  1. EXJADE [Suspect]
     Indication: SERUM FERRITIN INCREASED
     Dosage: 1000 MG, QD, ORAL
     Route: 048
     Dates: start: 20060425, end: 20060502
  2. SINGULAIR [Concomitant]
  3. PENICILLIN [Concomitant]

REACTIONS (5)
  - PRURITUS [None]
  - RASH GENERALISED [None]
  - RASH MACULO-PAPULAR [None]
  - SKIN LESION [None]
  - URTICARIA [None]
